FAERS Safety Report 18542141 (Version 1)
Quarter: 2020Q4

REPORT INFORMATION
  Report Type: Spontaneous
  Country: US (occurrence: US)
  Receive Date: 20201124
  Receipt Date: 20201124
  Transmission Date: 20210114
  Serious: Yes (Other)
  Sender: FDA-Public Use
  Company Number: US-REGENERON PHARMACEUTICALS, INC.-2020-89162

PATIENT

DRUGS (1)
  1. LIBTAYO [Suspect]
     Active Substance: CEMIPLIMAB-RWLC
     Indication: PRODUCT USED FOR UNKNOWN INDICATION
     Dosage: 4 CYCLES
     Dates: start: 20200114

REACTIONS (4)
  - Neutropenia [Unknown]
  - Lymphoma transformation [Unknown]
  - Adenocarcinoma of colon [Unknown]
  - Diffuse large B-cell lymphoma [Unknown]
